FAERS Safety Report 4584706-X (Version None)
Quarter: 2005Q1

REPORT INFORMATION
  Report Type: 
  Country: None (occurrence: None)
  Receive Date: 20050211
  Receipt Date: 20050128
  Transmission Date: 20050727
  Serious: Yes (Hospitalization, Other)
  Sender: FDA-Public Use
  Company Number: 2005BI002338

PATIENT
  Age: 54 Year
  Sex: Female

DRUGS (1)
  1. AVONEX [Suspect]
     Indication: MULTIPLE SCLEROSIS
     Dosage: IM
     Route: 030
     Dates: start: 20040901, end: 20041201

REACTIONS (6)
  - ANAEMIA [None]
  - GASTRIC HAEMORRHAGE [None]
  - INFLAMMATION [None]
  - OESOPHAGEAL HAEMORRHAGE [None]
  - PAINFUL RESPIRATION [None]
  - PERICARDIAL EFFUSION [None]
